FAERS Safety Report 8447484 (Version 2)
Quarter: 2012Q4

REPORT INFORMATION
  Report Type: 
  Country: FR (occurrence: FR)
  Receive Date: 20120308
  Receipt Date: 20121130
  Transmission Date: 20130627
  Serious: Yes (Hospitalization)
  Sender: FDA-Public Use
  Company Number: FR-SANOFI-AVENTIS-2012SA013411

PATIENT
  Age: 72 Year
  Sex: Female

DRUGS (6)
  1. LASILIX [Suspect]
     Indication: DRUG USE FOR UNKNOWN INDICATION
     Route: 048
     Dates: start: 2011, end: 201112
  2. CALCIPARINE [Suspect]
     Indication: PULMONARY EMBOLISM
     Route: 058
     Dates: start: 20111219, end: 20111225
  3. KARDEGIC [Suspect]
     Indication: PULMONARY EMBOLISM
     Route: 048
     Dates: start: 20111220, end: 20111224
  4. EUPRESSYL [Suspect]
     Indication: DRUG USE FOR UNKNOWN INDICATION
     Route: 048
     Dates: start: 2011, end: 20111224
  5. NEBIVOLOL [Suspect]
     Indication: DRUG USE FOR UNKNOWN INDICATION
     Route: 048
     Dates: start: 2011, end: 20111224
  6. ACUPAN [Suspect]
     Indication: DRUG USE FOR UNKNOWN INDICATION
     Route: 042
     Dates: start: 20111225, end: 20111225

REACTIONS (2)
  - Muscle haemorrhage [Recovered/Resolved]
  - Anaemia [Recovered/Resolved]
